FAERS Safety Report 9186869 (Version 1)
Quarter: 2013Q1

REPORT INFORMATION
  Report Type: Report from Study
  Country: FR (occurrence: FR)
  Receive Date: 20130325
  Receipt Date: 20130325
  Transmission Date: 20140127
  Serious: Yes (Hospitalization)
  Sender: FDA-Public Use
  Company Number: FR-009507513-1212FRA005819

PATIENT
  Age: 66 Year
  Sex: Male
  Weight: 85 kg

DRUGS (6)
  1. BOCEPREVIR [Suspect]
     Indication: HEPATITIS C
     Dosage: 800 MG, TID
     Route: 048
     Dates: start: 20120308
  2. PEGASYS [Suspect]
     Indication: HEPATITIS C
     Dosage: 135 MICROGRAM, QW
     Dates: start: 20120726
  3. COPEGUS [Suspect]
     Indication: HEPATITIS C
     Dosage: 600 MG, BID
     Route: 048
     Dates: start: 20120208
  4. MOPRAL (OMEPRAZOLE) [Concomitant]
     Indication: GASTROOESOPHAGEAL REFLUX DISEASE
     Dosage: 20 MG, BID
     Dates: start: 20020729
  5. AVLOCARDYL [Concomitant]
     Indication: VARICES OESOPHAGEAL
     Dosage: 160 MG, QD
  6. NEORECORMON [Concomitant]
     Indication: ANAEMIA
     Dosage: 30000 IU, UNKNOWN
     Dates: start: 20121017

REACTIONS (1)
  - Hypoalbuminaemia [Recovered/Resolved]
